FAERS Safety Report 22264742 (Version 1)
Quarter: 2023Q2

REPORT INFORMATION
  Report Type: Spontaneous
  Country: DE (occurrence: DE)
  Receive Date: 20230428
  Receipt Date: 20230428
  Transmission Date: 20230721
  Serious: Yes (Other)
  Sender: FDA-Public Use
  Company Number: DE-009507513-2304DEU009126

PATIENT
  Age: 80 Year
  Sex: Female

DRUGS (1)
  1. PEMBROLIZUMAB [Suspect]
     Active Substance: PEMBROLIZUMAB
     Indication: Drug therapy
     Dosage: 200 MILLIGRAM, Q3W
     Dates: start: 20201105

REACTIONS (3)
  - Blood thyroid stimulating hormone increased [Unknown]
  - Tri-iodothyronine free decreased [Unknown]
  - Thyroxine free decreased [Unknown]

NARRATIVE: CASE EVENT DATE: 20210416
